FAERS Safety Report 8234664-1 (Version None)
Quarter: 2012Q1

REPORT INFORMATION
  Report Type: 
  Country: None (occurrence: None)
  Receive Date: 20120326
  Receipt Date: 20120321
  Transmission Date: 20120608
  Serious: Yes (Other)
  Sender: FDA-Public Use
  Company Number: US-PFIZER INC-2012074019

PATIENT
  Sex: Female

DRUGS (3)
  1. CELEBREX [Suspect]
     Dosage: UNK
  2. AMBIEN [Concomitant]
     Indication: SLEEP DISORDER
     Dosage: UNK
  3. LYRICA [Suspect]
     Dosage: UNK

REACTIONS (3)
  - BACK INJURY [None]
  - LOSS OF CONSCIOUSNESS [None]
  - HYPOAESTHESIA [None]
